FAERS Safety Report 15262285 (Version 1)
Quarter: 2018Q3

REPORT INFORMATION
  Report Type: Spontaneous
  Country: ES (occurrence: ES)
  Receive Date: 20180809
  Receipt Date: 20180809
  Transmission Date: 20181010
  Serious: Yes (Hospitalization)
  Sender: FDA-Public Use
  Company Number: ES-009507513-1808ESP000577

PATIENT
  Age: 54 Year

DRUGS (1)
  1. IVERMECTIN. [Suspect]
     Active Substance: IVERMECTIN
     Indication: EOSINOPHILIA
     Dosage: 6 MG EVERY 12 HOURS DURING 7 DAYS
     Route: 048
     Dates: start: 20171009, end: 20171015

REACTIONS (2)
  - Acute motor-sensory axonal neuropathy [Recovering/Resolving]
  - Rash pruritic [Recovered/Resolved]

NARRATIVE: CASE EVENT DATE: 20171015
